FAERS Safety Report 10978795 (Version 1)
Quarter: 2015Q1

REPORT INFORMATION
  Report Type: Spontaneous
  Country: GR (occurrence: None)
  Receive Date: 20150330
  Receipt Date: 20150330
  Transmission Date: 20150721
  Serious: Yes (Hospitalization)
  Sender: FDA-Public Use
  Company Number: GR-2013VAL000595

PATIENT
  Age: 5 Day
  Sex: Male

DRUGS (1)
  1. METHYLERGONOVINE MALEATE. [Suspect]
     Active Substance: METHYLERGONOVINE MALEATE
     Indication: PRODUCT USED FOR UNKNOWN INDICATION

REACTIONS (10)
  - Accidental exposure to product by child [None]
  - Accidental overdose [None]
  - Electrocardiogram ST segment depression [None]
  - Arteriospasm coronary [None]
  - Irritability [None]
  - Vomiting [None]
  - Vasospasm [None]
  - Troponin T increased [None]
  - Ergot poisoning [None]
  - Troponin increased [None]
